FAERS Safety Report 6204895-0 (Version None)
Quarter: 2009Q2

REPORT INFORMATION
  Report Type: 
  Country: None (occurrence: None)
  Receive Date: 20090527
  Receipt Date: 20090520
  Transmission Date: 20091009
  Serious: Yes (Hospitalization)
  Sender: FDA-Public Use
  Company Number: US-MERCK-0905USA02903

PATIENT
  Age: 73 Year
  Sex: Female

DRUGS (2)
  1. FOSAMAX [Suspect]
     Indication: OSTEOPOROSIS
     Route: 048
     Dates: start: 20060101
  2. ACTOS [Concomitant]
     Route: 065

REACTIONS (3)
  - CYSTITIS [None]
  - NEPHROLITHIASIS [None]
  - OVERDOSE [None]
